FAERS Safety Report 14836508 (Version 1)
Quarter: 2018Q2

REPORT INFORMATION
  Report Type: Report from Study
  Country: US (occurrence: US)
  Receive Date: 20180502
  Receipt Date: 20180502
  Transmission Date: 20180711
  Serious: Yes (Other)
  Sender: FDA-Public Use
  Company Number: US-ROCHE-2116569

PATIENT
  Age: 55 Year
  Sex: Female

DRUGS (1)
  1. OCREVUS [Suspect]
     Active Substance: OCRELIZUMAB
     Indication: MULTIPLE SCLEROSIS
     Dosage: 1/2 DOSE
     Route: 065
     Dates: start: 20180425

REACTIONS (7)
  - Swelling face [Unknown]
  - Ear pruritus [Unknown]
  - Fatigue [Unknown]
  - Nausea [Recovering/Resolving]
  - Dyspnoea [Unknown]
  - Erythema [Unknown]
  - Headache [Unknown]

NARRATIVE: CASE EVENT DATE: 20180425
